FAERS Safety Report 6256801-0 (Version None)
Quarter: 2009Q3

REPORT INFORMATION
  Report Type: 
  Country: None (occurrence: None)
  Receive Date: 20090701
  Receipt Date: 20090701
  Transmission Date: 20100115
  Serious: Yes (Life-Threatening)
  Sender: FDA-Public Use
  Company Number: None

PATIENT
  Sex: Female

DRUGS (4)
  1. AVIANE-28 [Suspect]
     Indication: CONTRACEPTION
     Dosage: CAPLETS BLISTER PACK
     Dates: end: 20090601
  2. MESTONON [Concomitant]
  3. ASMOURTHYROID [Concomitant]
  4. FLOVENT [Concomitant]

REACTIONS (3)
  - HEART INJURY [None]
  - PALPITATIONS [None]
  - VENTRICULAR EXTRASYSTOLES [None]
